FAERS Safety Report 19815717 (Version 1)
Quarter: 2021Q3

REPORT INFORMATION
  Report Type: Spontaneous
  Country: NL (occurrence: NL)
  Receive Date: 20210910
  Receipt Date: 20210910
  Transmission Date: 20211014
  Serious: Yes (Other)
  Sender: FDA-Public Use
  Company Number: NL-MYLANLABS-2021M1060505

PATIENT
  Age: 51 Year
  Sex: Female

DRUGS (1)
  1. MORFIN [MORPHINE] [Suspect]
     Active Substance: MORPHINE
     Indication: PAIN
     Dosage: 10 MILLIGRAM, Q4H (MAXIMUM OF 1 SUPPOSITORY 6 TIMES)
     Dates: start: 2021

REACTIONS (3)
  - Product physical issue [Unknown]
  - Drug abuse [Unknown]
  - Product quality issue [Unknown]

NARRATIVE: CASE EVENT DATE: 20210426
